FAERS Safety Report 9369737 (Version 1)
Quarter: 2013Q2

REPORT INFORMATION
  Report Type: Spontaneous
  Country: US (occurrence: None)
  Receive Date: 20130625
  Receipt Date: 20130625
  Transmission Date: 20140414
  Serious: Yes (Other)
  Sender: FDA-Public Use
  Company Number: None

PATIENT
  Age: 35 Year
  Sex: Female
  Weight: 90.72 kg

DRUGS (10)
  1. BUPROPION HCL XL [Suspect]
     Route: 048
     Dates: start: 20121020
  2. RESTORIL 30MG [Concomitant]
  3. XANAX 1MG GREENSTONE LTD [Concomitant]
  4. PRISTIQ 50MG [Concomitant]
  5. SEROQUEL 400MG [Concomitant]
  6. ABILIFY 45MG [Concomitant]
  7. METFORMIN 500MG [Concomitant]
  8. DEPAKOTE ER 1500MG [Concomitant]
  9. WELLBUTRIN XL 15MG [Concomitant]
  10. ALLY 60MG [Concomitant]

REACTIONS (9)
  - Depression [None]
  - Anxiety [None]
  - Affective disorder [None]
  - Apathy [None]
  - Insomnia [None]
  - Decreased appetite [None]
  - Fatigue [None]
  - Disturbance in attention [None]
  - Irritability [None]
